FAERS Safety Report 6781709-1 (Version None)
Quarter: 2010Q2

REPORT INFORMATION
  Report Type: 
  Country: None (occurrence: None)
  Receive Date: 20100616
  Receipt Date: 20100602
  Transmission Date: 20101027
  Serious: Yes (Hospitalization)
  Sender: FDA-Public Use
  Company Number: 1000014441

PATIENT
  Age: 24 Year
  Sex: Male

DRUGS (4)
  1. ESCITALOPRAM [Suspect]
     Indication: MAJOR DEPRESSION
     Dosage: 10 MG (10 MG, 1 IN 1 D), ORAL
     Route: 048
     Dates: start: 20100408
  2. INEXIUM (TABLETS) [Suspect]
     Dosage: 40 MG (40 MG, 1 IN 1 D), ORAL
     Route: 048
     Dates: start: 20100201, end: 20100414
  3. LEXOMIL (TABLETS) [Suspect]
     Dosage: 6 MG (6 MG, 1 IN 1 D), ORAL
     Route: 048
     Dates: start: 20100408, end: 20100414
  4. EFFERALGAN CODEINE (TABLETS) [Suspect]
     Dosage: 500 MG, AS REQUIRED, ORAL
     Route: 048

REACTIONS (3)
  - CYTOLYTIC HEPATITIS [None]
  - DISEASE RECURRENCE [None]
  - HAEMORRHAGE [None]
